FAERS Safety Report 15116573 (Version 3)
Quarter: 2018Q3

REPORT INFORMATION
  Report Type: Report from Study
  Country: US (occurrence: US)
  Receive Date: 20180706
  Receipt Date: 20180822
  Transmission Date: 20181010
  Serious: Yes (Other)
  Sender: FDA-Public Use
  Company Number: US-BAYER-2018-103917

PATIENT
  Age: 64 Year
  Sex: Male

DRUGS (2)
  1. STIVARGA [Suspect]
     Active Substance: REGORAFENIB
     Indication: HEPATOCELLULAR CARCINOMA
     Dosage: 120 MG, DAILY 21DAYS ON 7 DAYS OFF
     Route: 048
     Dates: start: 20180627, end: 20180812
  2. STIVARGA [Suspect]
     Active Substance: REGORAFENIB
     Indication: HEPATOCELLULAR CARCINOMA
     Dosage: DAILY DOSE 160 MG
     Route: 048
     Dates: start: 20180524

REACTIONS (10)
  - Dry skin [None]
  - Weight decreased [None]
  - Headache [None]
  - Joint swelling [None]
  - Ascites [None]
  - Dehydration [None]
  - Decreased appetite [None]
  - Blood glucose decreased [None]
  - Diarrhoea [None]
  - Fatigue [Not Recovered/Not Resolved]

NARRATIVE: CASE EVENT DATE: 2018
